FAERS Safety Report 17743780 (Version 1)
Quarter: 2020Q2

REPORT INFORMATION
  Report Type: Spontaneous
  Country: CN (occurrence: CN)
  Receive Date: 20200505
  Receipt Date: 20200505
  Transmission Date: 20200714
  Serious: Yes (Other)
  Sender: FDA-Public Use
  Company Number: CN-GLAXOSMITHKLINE-CN2020APC073939

PATIENT
  Age: 26 Year
  Sex: Female
  Weight: 120 kg

DRUGS (1)
  1. MUPIROCIN. [Suspect]
     Active Substance: MUPIROCIN
     Indication: FOLLICULITIS
     Dosage: 0.25 ?G, TID
     Route: 061
     Dates: start: 20200426, end: 20200428

REACTIONS (6)
  - Pruritus [Recovering/Resolving]
  - Application site erythema [Recovering/Resolving]
  - Feeling hot [Recovering/Resolving]
  - Application site swelling [Recovering/Resolving]
  - Application site pain [Unknown]
  - Rash papular [Recovering/Resolving]

NARRATIVE: CASE EVENT DATE: 20200427
